FAERS Safety Report 25878099 (Version 1)
Quarter: 2025Q4

REPORT INFORMATION
  Report Type: Spontaneous
  Country: US (occurrence: US)
  Receive Date: 20251003
  Receipt Date: 20251003
  Transmission Date: 20260118
  Serious: Yes (Hospitalization, Other)
  Sender: SANDOZ
  Company Number: US-SANDOZ-SDZ2025US070884

PATIENT
  Age: 58 Year
  Sex: Male

DRUGS (6)
  1. CLOTRIMAZOLE [Suspect]
     Active Substance: CLOTRIMAZOLE
     Indication: Antifungal prophylaxis
     Dosage: 10 MG, TID
     Route: 065
  2. MYCOPHENOLATE SODIUM [Suspect]
     Active Substance: MYCOPHENOLATE SODIUM
     Indication: Immunosuppression
     Dosage: 360 MG, BID
     Route: 065
  3. TACROLIMUS [Suspect]
     Active Substance: TACROLIMUS
     Indication: Immunosuppression
     Dosage: 1 MG, BID
     Route: 065
  4. PREDNISONE [Concomitant]
     Active Substance: PREDNISONE
     Indication: Immunosuppression
     Dosage: 20 MG, QD
     Route: 065
  5. SULFAMETHOXAZOLE AND TRIMETHOPRIM [Concomitant]
     Active Substance: SULFAMETHOXAZOLE\TRIMETHOPRIM
     Indication: Infection prophylaxis
     Dosage: 400-80MG TWICE WEEKLY
     Route: 065
  6. VALGANCICLOVIR [Concomitant]
     Active Substance: VALGANCICLOVIR
     Indication: Infection prophylaxis
     Dosage: 450 MG, BIW
     Route: 065

REACTIONS (3)
  - Candida infection [Recovering/Resolving]
  - Vascular pseudoaneurysm [Unknown]
  - Drug ineffective [Unknown]
